FAERS Safety Report 8799657 (Version 1)
Quarter: 2012Q4

REPORT INFORMATION
  Report Type: Spontaneous
  Country: US (occurrence: None)
  Receive Date: 20120918
  Receipt Date: 20120918
  Transmission Date: 20130627
  Serious: Yes (Hospitalization)
  Sender: FDA-Public Use
  Company Number: None

PATIENT
  Age: 13 Year
  Sex: Female
  Weight: 51.8 kg

DRUGS (3)
  1. ONCASPAR [Suspect]
     Dates: start: 20120312
  2. VINCRISTINE [Concomitant]
  3. DAUNORUBICIN [Concomitant]

REACTIONS (4)
  - Pancreatitis [None]
  - Hypotension [None]
  - Tachycardia [None]
  - Abdominal pain [None]
